FAERS Safety Report 4683967-6 (Version None)
Quarter: 2005Q2

REPORT INFORMATION
  Report Type: 
  Country: None (occurrence: None)
  Receive Date: 20050602
  Receipt Date: 20050111
  Transmission Date: 20051028
  Serious: Yes (Other)
  Sender: FDA-Public Use
  Company Number: USA050187212

PATIENT
  Age: 35 Year
  Sex: Female
  Weight: 105 kg

DRUGS (3)
  1. CYMBALTA [Suspect]
     Indication: DEPRESSION
     Dosage: 30 MG DAY
     Dates: start: 20041211, end: 20041214
  2. PYRIDIUM (PHENAZOPYRIDINE HYDROCHLORIDE) [Concomitant]
  3. BACTRIM DS [Concomitant]

REACTIONS (2)
  - PARAESTHESIA OF GENITAL FEMALE [None]
  - URINARY RETENTION [None]
